FAERS Safety Report 6187469-X (Version None)
Quarter: 2009Q2

REPORT INFORMATION
  Report Type: 
  Country: None (occurrence: None)
  Receive Date: 20090512
  Receipt Date: 20090508
  Transmission Date: 20091009
  Serious: Yes (Disabling)
  Sender: FDA-Public Use
  Company Number: DE-BRISTOL-MYERS SQUIBB COMPANY-14608350

PATIENT
  Age: 52 Year
  Sex: Female
  Weight: 61 kg

DRUGS (8)
  1. TAXOL [Suspect]
     Indication: BREAST CANCER
     Dates: start: 20080121, end: 20080312
  2. CYCLOPHOSPHAMIDE [Suspect]
     Indication: BREAST CANCER
     Dates: start: 20071126, end: 20080107
  3. XELODA [Suspect]
     Indication: BREAST CANCER
     Dosage: FREQ:ONCE EVERY DAY FOR 2 WEEKS, EVERY 21 DAYS
     Dates: start: 20080121, end: 20080318
  4. EPIRUBICIN [Suspect]
     Indication: BREAST CANCER
     Dates: start: 20071126, end: 20080107
  5. RIVANOL [Concomitant]
     Dosage: ALSO TAKEN IN OINTMENT FORM.
     Dates: start: 20080305, end: 20080301
  6. TELFAST [Concomitant]
     Dates: start: 20080312, end: 20080301
  7. DORMALIN [Concomitant]
     Dates: start: 20080312, end: 20080301
  8. RIVANOL [Concomitant]
     Dosage: FORMULATION = OINTMENT
     Dates: start: 20080305, end: 20080301

REACTIONS (1)
  - PALMAR-PLANTAR ERYTHRODYSAESTHESIA SYNDROME [None]
